FAERS Safety Report 25904707 (Version 1)
Quarter: 2025Q4

REPORT INFORMATION
  Report Type: Spontaneous
  Country: CN (occurrence: CN)
  Receive Date: 20251010
  Receipt Date: 20251010
  Transmission Date: 20260117
  Serious: Yes (Hospitalization)
  Sender: NOVARTIS
  Company Number: CN-002147023-NVSC2025CN152571

PATIENT
  Age: 41 Year
  Sex: Female
  Weight: 42 kg

DRUGS (1)
  1. CARBAMAZEPINE [Suspect]
     Active Substance: CARBAMAZEPINE
     Indication: Facial spasm
     Dosage: 1.000 DOSAGE FORM, QD
     Route: 048
     Dates: start: 20250823, end: 20250828

REACTIONS (8)
  - Drug eruption [Recovering/Resolving]
  - Erythema [Unknown]
  - Papule [Unknown]
  - Pruritus [Unknown]
  - Skin lesion [Unknown]
  - Lip erosion [Unknown]
  - Mouth ulceration [Unknown]
  - Blood pressure decreased [Unknown]

NARRATIVE: CASE EVENT DATE: 20250905
